FAERS Safety Report 17395613 (Version 1)
Quarter: 2020Q1

REPORT INFORMATION
  Report Type: Spontaneous
  Country: US (occurrence: US)
  Receive Date: 20200206
  Receipt Date: 20200206
  Transmission Date: 20200409
  Serious: Yes (Life-Threatening, Other)
  Sender: FDA-Public Use
  Company Number: None

PATIENT
  Age: 5 Year
  Sex: Female
  Weight: 16.8 kg

DRUGS (1)
  1. IVABRADINE [Suspect]
     Active Substance: IVABRADINE
     Indication: CARDIAC FAILURE
     Route: 048
     Dates: start: 20200203, end: 20200204

REACTIONS (3)
  - Overdose [None]
  - Wrong technique in product usage process [None]
  - Incorrect dose administered [None]

NARRATIVE: CASE EVENT DATE: 20200204
